FAERS Safety Report 10737381 (Version 1)
Quarter: 2015Q1

REPORT INFORMATION
  Report Type: Spontaneous
  Country: US (occurrence: None)
  Receive Date: 20150122
  Receipt Date: 20150122
  Transmission Date: 20150721
  Serious: No
  Sender: FDA-Public Use
  Company Number: None

PATIENT
  Age: 53 Year
  Sex: Female
  Weight: 68.04 kg

DRUGS (1)
  1. CIPROFLOXACIN. [Suspect]
     Active Substance: CIPROFLOXACIN
     Indication: CONJUNCTIVITIS
     Dosage: 1 DROP, EVERY 2 HRS AWAKE, INTO THE EYE
     Dates: start: 20150117, end: 20150120

REACTIONS (7)
  - Product container issue [None]
  - Eye pruritus [None]
  - Product deposit [None]
  - Eye irritation [None]
  - Eye pain [None]
  - Product formulation issue [None]
  - Ocular hyperaemia [None]

NARRATIVE: CASE EVENT DATE: 20150119
